FAERS Safety Report 16271436 (Version 1)
Quarter: 2019Q2

REPORT INFORMATION
  Report Type: Other
  Country: CN (occurrence: CN)
  Receive Date: 20190505
  Receipt Date: 20190505
  Transmission Date: 20190711
  Serious: Yes (Hospitalization)
  Sender: FDA-Public Use
  Company Number: CN-JIANGSU HENGRUI MEDICINE CO., LTD.-2066631

PATIENT
  Age: 31 Year
  Sex: Male
  Weight: 58 kg

DRUGS (2)
  1. METRONIDAZOLE. [Suspect]
     Active Substance: METRONIDAZOLE
     Route: 041
     Dates: start: 20190412, end: 20190412
  2. CISATRACURIUM BESYLATE INJECTION USP, 20 MG/10 ML (2 MG/ML) MULTI-DOSE [Suspect]
     Active Substance: CISATRACURIUM BESYLATE
     Indication: GENERAL ANAESTHESIA
     Route: 040
     Dates: start: 20190412, end: 20190412

REACTIONS (2)
  - Balanoposthitis [Recovering/Resolving]
  - Flushing [Recovering/Resolving]

NARRATIVE: CASE EVENT DATE: 20190413
